FAERS Safety Report 5877175-0 (Version None)
Quarter: 2008Q3

REPORT INFORMATION
  Report Type: 
  Country: None (occurrence: None)
  Receive Date: 20080909
  Receipt Date: 20080909
  Transmission Date: 20090109
  Serious: Yes (Other)
  Sender: FDA-Public Use
  Company Number: None

PATIENT
  Age: 47 Year
  Sex: Female
  Weight: 70.3075 kg

DRUGS (1)
  1. PHENTERMINE [Suspect]
     Indication: WEIGHT CONTROL
     Dosage: 37.5 MG 1 TIME A DAY
     Dates: start: 20080801, end: 20080815

REACTIONS (1)
  - MIGRAINE [None]
